FAERS Safety Report 15922532 (Version 3)
Quarter: 2025Q3

REPORT INFORMATION
  Report Type: Spontaneous
  Country: EU (occurrence: EU)
  Receive Date: 20190206
  Receipt Date: 20250728
  Transmission Date: 20251021
  Serious: Yes (Hospitalization, Other)
  Sender: AUROBINDO
  Company Number: EU-AUROBINDO-AUR-APL-2018-056136

PATIENT
  Age: 42 Year
  Sex: Female

DRUGS (1)
  1. ACETAMINOPHEN [Suspect]
     Active Substance: ACETAMINOPHEN
     Indication: Pain
     Dosage: 4 GRAM, DAILY (SEVERAL WEEKS)
     Route: 065

REACTIONS (16)
  - Acute hepatic failure [Recovering/Resolving]
  - Multiple organ dysfunction syndrome [Recovering/Resolving]
  - Generalised oedema [Recovering/Resolving]
  - Hepatomegaly [Recovering/Resolving]
  - Liver disorder [Recovering/Resolving]
  - Ascites [Recovering/Resolving]
  - Biliary colic [Recovering/Resolving]
  - Ocular icterus [Recovering/Resolving]
  - Confusional state [Recovering/Resolving]
  - Jaundice [Recovering/Resolving]
  - Dizziness [Recovering/Resolving]
  - Pollakiuria [Recovering/Resolving]
  - Asterixis [Recovering/Resolving]
  - Pyrexia [Recovering/Resolving]
  - Tenderness [Recovering/Resolving]
  - Abdominal pain lower [Recovering/Resolving]
